FAERS Safety Report 4758991-5 (Version None)
Quarter: 2005Q3

REPORT INFORMATION
  Report Type: 
  Country: None (occurrence: None)
  Receive Date: 20050826
  Receipt Date: 20050810
  Transmission Date: 20060218
  Serious: No
  Sender: FDA-Public Use
  Company Number: DSA_26884_2005

PATIENT
  Age: 86 Year
  Sex: Male

DRUGS (2)
  1. CARDIZEM [Suspect]
     Dosage: DF
     Dates: end: 20050101
  2. TIKOSYN [Suspect]
     Dosage: DF

REACTIONS (1)
  - IMPLANTABLE DEFIBRILLATOR MALFUNCTION [None]
